FAERS Safety Report 16309521 (Version 1)
Quarter: 2019Q2

REPORT INFORMATION
  Report Type: Spontaneous
  Country: CN (occurrence: CN)
  Receive Date: 20190514
  Receipt Date: 20190514
  Transmission Date: 20190711
  Serious: Yes (Other)
  Sender: FDA-Public Use
  Company Number: CN-PFIZER INC-2019198597

PATIENT
  Age: 38 Year
  Sex: Female
  Weight: 70 kg

DRUGS (14)
  1. DIPROPHYLLINE [Concomitant]
     Active Substance: DYPHYLLINE
     Indication: INFLAMMATION
     Dosage: 0.75 G, 1X/DAY
     Dates: start: 20190407, end: 20190422
  2. TERBUTALINE SULFATE. [Concomitant]
     Active Substance: TERBUTALINE SULFATE
     Indication: INFLAMMATION
     Dosage: 1 DF, 1X/DAY
     Dates: start: 20190407, end: 20190426
  3. LEVOFLOXACIN LACTATE/SODIUM CHLORIDE [Concomitant]
  4. METHYLPREDNISOLONE SODIUM SUCCINATE. [Suspect]
     Active Substance: METHYLPREDNISOLONE SODIUM SUCCINATE
     Indication: ASTHMA
     Dosage: 80 MG, UNK (FURTHER PUMPING)
     Route: 042
     Dates: start: 201904, end: 20190417
  5. BUDESONIDE. [Suspect]
     Active Substance: BUDESONIDE
     Indication: ASTHMA
  6. SODIUM CHLORIDE. [Concomitant]
     Active Substance: SODIUM CHLORIDE
     Indication: VEHICLE SOLUTION USE
     Dosage: 47 ML, UNK (PUMPED IN AT THE RATE OF 2 ML/H, THEN INCREASED)
     Dates: start: 20190407
  7. BUDESONIDE. [Suspect]
     Active Substance: BUDESONIDE
     Indication: INFLAMMATION
     Dosage: 1 DF, 1X/DAY
     Dates: start: 20190407, end: 20190426
  8. TERBUTALINE SULFATE. [Concomitant]
     Active Substance: TERBUTALINE SULFATE
     Indication: ASTHMA
  9. AMBROXOL [Concomitant]
     Active Substance: AMBROXOL
     Indication: PRODUCTIVE COUGH
  10. METHYLPREDNISOLONE SODIUM SUCCINATE. [Suspect]
     Active Substance: METHYLPREDNISOLONE SODIUM SUCCINATE
     Indication: INFLAMMATION
     Dosage: 40 MG, UNK (PUMPED IN AT THE RATE OF 2 ML/H)
     Route: 042
     Dates: start: 20190407, end: 201904
  11. METHYLPREDNISOLONE SODIUM SUCCINATE. [Suspect]
     Active Substance: METHYLPREDNISOLONE SODIUM SUCCINATE
     Dosage: 40 MG, UNK (PUMPING)
     Route: 042
     Dates: start: 20190417, end: 20190423
  12. METHYLPREDNISOLONE SODIUM SUCCINATE. [Suspect]
     Active Substance: METHYLPREDNISOLONE SODIUM SUCCINATE
     Dosage: 20 MG, UNK
     Route: 042
     Dates: start: 20190423, end: 20190425
  13. DIPROPHYLLINE [Concomitant]
     Active Substance: DYPHYLLINE
     Indication: ASTHMA
  14. SODIUM CHLORIDE. [Concomitant]
     Active Substance: SODIUM CHLORIDE
     Dosage: 4 ML, UNK
     Dates: start: 20190407, end: 20190426

REACTIONS (7)
  - Therapeutic product effect incomplete [Unknown]
  - Granulocyte count increased [Recovered/Resolved]
  - Asthma [Recovering/Resolving]
  - Pharyngeal leukoplakia [Recovered/Resolved]
  - White blood cell count increased [Recovered/Resolved]
  - Leukoplakia oral [Recovered/Resolved]
  - Blood pressure increased [Recovered/Resolved]

NARRATIVE: CASE EVENT DATE: 20190417
